FAERS Safety Report 4685968-0 (Version None)
Quarter: 2005Q2

REPORT INFORMATION
  Report Type: 
  Country: None (occurrence: None)
  Receive Date: 20050606
  Receipt Date: 20050523
  Transmission Date: 20051028
  Serious: Yes (Disabling, Other)
  Sender: FDA-Public Use
  Company Number: ABPAL-05-0276

PATIENT
  Age: 67 Year
  Sex: Female

DRUGS (4)
  1. ABRAXANE [Suspect]
     Indication: BREAST CANCER METASTATIC
     Dosage: 6 DOSES; 2 CYCLES (100 MG/M2, EVERY WEEK X 3 WK THEN OFF 1 WEEK), INTRAVENOUS DRIP
     Route: 041
     Dates: start: 20050318, end: 20020512
  2. COUMADIN [Concomitant]
  3. OXYCONTIN [Concomitant]
  4. ZOMETA [Concomitant]

REACTIONS (4)
  - DISEASE PROGRESSION [None]
  - DYSPHONIA [None]
  - METASTASES TO BONE [None]
  - VOCAL CORD PARALYSIS [None]
